FAERS Safety Report 5159610-9 (Version None)
Quarter: 2006Q4

REPORT INFORMATION
  Report Type: 
  Country: None (occurrence: None)
  Receive Date: 20061129
  Receipt Date: 20061005
  Transmission Date: 20070319
  Serious: Yes (Other)
  Sender: FDA-Public Use
  Company Number: PHBS2006JP15727

PATIENT
  Sex: Male

DRUGS (5)
  1. PL GRAN. [Concomitant]
     Indication: NASOPHARYNGITIS
     Route: 048
  2. MEIACT [Suspect]
     Indication: NASOPHARYNGITIS
     Route: 048
  3. VALTREX [Concomitant]
     Indication: NASOPHARYNGITIS
     Route: 048
  4. MEDICON [Concomitant]
     Indication: NASOPHARYNGITIS
     Route: 048
  5. LAMISIL [Suspect]
     Indication: NAIL TINEA
     Dosage: 125 MG/DAY
     Route: 048

REACTIONS (4)
  - FACIAL PALSY [None]
  - LIVER DISORDER [None]
  - NASOPHARYNGITIS [None]
  - RASH [None]
